FAERS Safety Report 16970993 (Version 2)
Quarter: 2019Q4

REPORT INFORMATION
  Report Type: Spontaneous
  Country: US (occurrence: US)
  Receive Date: 20191029
  Receipt Date: 20191202
  Transmission Date: 20200122
  Serious: Yes (Other)
  Sender: FDA-Public Use
  Company Number: US-BAYER-2019-193299

PATIENT
  Age: 27 Year
  Sex: Female
  Weight: 95 kg

DRUGS (3)
  1. GADAVIST [Suspect]
     Active Substance: GADOBUTROL
     Indication: MAGNETIC RESONANCE IMAGING BREAST
     Dosage: 9 ML, ONCE
     Route: 042
     Dates: start: 20191024, end: 20191024
  2. GADAVIST [Suspect]
     Active Substance: GADOBUTROL
     Indication: NIPPLE EXUDATE BLOODY
  3. SETRALIN SANDOZ [Concomitant]

REACTIONS (5)
  - Anaphylactic reaction [Recovered/Resolved]
  - Tongue pruritus [Recovered/Resolved]
  - Sensation of foreign body [Recovered/Resolved]
  - Urticaria [Recovered/Resolved]
  - Pruritus [Recovered/Resolved]

NARRATIVE: CASE EVENT DATE: 20191024
